FAERS Safety Report 4527743-3 (Version None)
Quarter: 2004Q4

REPORT INFORMATION
  Report Type: 
  Country: None (occurrence: None)
  Receive Date: 20041215
  Receipt Date: 20041207
  Transmission Date: 20050328
  Serious: Yes (Hospitalization)
  Sender: FDA-Public Use
  Company Number: ES-ROCHE-388957

PATIENT
  Age: 62 Year
  Sex: Female

DRUGS (7)
  1. DACLIZUMAB [Suspect]
     Route: 042
     Dates: start: 20040908, end: 20041020
  2. MYCOPHENOLATE MOFETIL [Suspect]
     Route: 048
     Dates: start: 20040908
  3. SIROLIMUS [Suspect]
     Route: 048
     Dates: start: 20040908
  4. STEROIDS NOS [Suspect]
     Route: 048
     Dates: start: 20040908
  5. OMEPRAZOLE [Concomitant]
     Route: 048
     Dates: start: 20040907
  6. ATENOLOL [Concomitant]
     Route: 048
     Dates: start: 20041005
  7. COTRIMOXAZOLE [Concomitant]
     Route: 048
     Dates: start: 20040909

REACTIONS (1)
  - OPPORTUNISTIC INFECTION [None]
